FAERS Safety Report 7552165-0 (Version None)
Quarter: 2011Q2

REPORT INFORMATION
  Report Type: 
  Country: None (occurrence: None)
  Receive Date: 20110616
  Receipt Date: 20041222
  Transmission Date: 20111010
  Serious: Yes (Hospitalization)
  Sender: FDA-Public Use
  Company Number: PHHO2004JP18441

PATIENT
  Sex: Male
  Weight: 58 kg

DRUGS (4)
  1. DIOVAN [Suspect]
     Indication: HYPERTENSION
     Dosage: 80 MG, QD
     Route: 048
     Dates: start: 20030807, end: 20031216
  2. LIPITOR [Concomitant]
  3. PLETAL [Concomitant]
     Indication: ARTERIOSCLEROSIS OBLITERANS
  4. NORVASC [Concomitant]
     Indication: HYPERTENSION

REACTIONS (4)
  - THROMBOTIC STROKE [None]
  - MUSCULAR WEAKNESS [None]
  - DYSARTHRIA [None]
  - DYSPHAGIA [None]
